FAERS Safety Report 4364821-6 (Version None)
Quarter: 2004Q2

REPORT INFORMATION
  Report Type: 
  Country: None (occurrence: None)
  Receive Date: 20040521
  Receipt Date: 20040429
  Transmission Date: 20050107
  Serious: Yes (Hospitalization)
  Sender: FDA-Public Use
  Company Number: US_030796126

PATIENT
  Age: 74 Year
  Sex: Female
  Weight: 66 kg

DRUGS (8)
  1. PEMETREXED (LY231514) [Suspect]
     Indication: MESOTHELIOMA
     Dosage: 850 MG
     Dates: start: 20030612
  2. CISPLATIN [Suspect]
     Indication: MESOTHELIOMA
     Dosage: 70 MG
     Dates: start: 20030612
  3. LEVOTHYROXINE SODIUM [Concomitant]
  4. LISINOPRIL [Concomitant]
  5. FAMOTIDINE [Concomitant]
  6. ATORVASTATIN CALCIUM [Concomitant]
  7. PANTOPRAZOLE [Concomitant]
  8. OXYCODONE [Concomitant]

REACTIONS (3)
  - HAEMATOCHEZIA [None]
  - PAIN [None]
  - STEVENS-JOHNSON SYNDROME [None]
